FAERS Safety Report 19357265 (Version 1)
Quarter: 2021Q2

REPORT INFORMATION
  Report Type: Spontaneous
  Country: CN (occurrence: CN)
  Receive Date: 20210602
  Receipt Date: 20210602
  Transmission Date: 20210717
  Serious: Yes (Other)
  Sender: FDA-Public Use
  Company Number: CN-CHEPLA-C20212673

PATIENT
  Age: 14 Year
  Sex: Male

DRUGS (4)
  1. CEFACLOR. [Suspect]
     Active Substance: CEFACLOR
  2. GANCICLOVIR. [Suspect]
     Active Substance: GANCICLOVIR
  3. CLINDAMYCIN. [Suspect]
     Active Substance: CLINDAMYCIN
  4. BRUFEN [Suspect]
     Active Substance: IBUPROFEN

REACTIONS (5)
  - Confusional state [Unknown]
  - Pulmonary hypertension [Unknown]
  - General physical health deterioration [Unknown]
  - Pneumonia [Unknown]
  - Orthopnoea [Unknown]
